FAERS Safety Report 14238533 (Version 1)
Quarter: 2017Q4

REPORT INFORMATION
  Report Type: Spontaneous
  Country: US (occurrence: None)
  Receive Date: 20171129
  Receipt Date: 20171129
  Transmission Date: 20180321
  Serious: Yes (Death, Hospitalization)
  Sender: FDA-Public Use
  Company Number: None

PATIENT
  Age: 62 Year
  Sex: Male
  Weight: 66.2 kg

DRUGS (4)
  1. CAMPTOSAR [Suspect]
     Active Substance: IRINOTECAN HYDROCHLORIDE
     Dates: end: 20171113
  2. LEUCOVORIN CALCIUM. [Suspect]
     Active Substance: LEUCOVORIN CALCIUM
     Dates: end: 20171113
  3. 5-FLUOROURACIL (5-FU) [Suspect]
     Active Substance: FLUOROURACIL
     Dates: end: 20171115
  4. ELOXATIN [Suspect]
     Active Substance: OXALIPLATIN
     Dates: end: 20171113

REACTIONS (6)
  - Cardio-respiratory arrest [None]
  - Acute kidney injury [None]
  - Septic shock [None]
  - Acute hepatic failure [None]
  - Metabolic acidosis [None]
  - Pancytopenia [None]

NARRATIVE: CASE EVENT DATE: 20171121
